FAERS Safety Report 6094019-5 (Version None)
Quarter: 2009Q1

REPORT INFORMATION
  Report Type: 
  Country: None (occurrence: None)
  Receive Date: 20090223
  Receipt Date: 20090219
  Transmission Date: 20090719
  Serious: Yes (Disabling)
  Sender: FDA-Public Use
  Company Number: GXKR2009DE01915

PATIENT
  Sex: Female
  Weight: 58 kg

DRUGS (1)
  1. TRIAMHEXAL (NGX) (TRIAMCINOLONE ACETONIDE) SUSPENSION FOR INJECTION, 4 [Suspect]
     Indication: BRONCHIAL HYPERREACTIVITY
     Dosage: 40 MG/DAILY, INTRAMUSCULAR
     Route: 030
     Dates: start: 20080807, end: 20080807

REACTIONS (3)
  - FAT NECROSIS [None]
  - MUSCLE NECROSIS [None]
  - SKIN NECROSIS [None]
